FAERS Safety Report 7621996-0 (Version None)
Quarter: 2011Q3

REPORT INFORMATION
  Report Type: 
  Country: None (occurrence: None)
  Receive Date: 20110720
  Receipt Date: 20090306
  Transmission Date: 20111222
  Serious: Yes (Other)
  Sender: FDA-Public Use
  Company Number: US-BAYER-2010-002057

PATIENT
  Age: 67 Year
  Sex: Male
  Weight: 95 kg

DRUGS (21)
  1. TRASYLOL [Suspect]
     Indication: CORONARY ARTERY BYPASS
     Dosage: 200 ML PUMP PRIME DOSE (TEST DOSE)
     Route: 042
     Dates: start: 20060816, end: 20060816
  2. TRASYLOL [Suspect]
     Dosage: 200 ML, BOLUS
     Route: 040
     Dates: start: 20060816, end: 20060816
  3. LOPRESSOR [Concomitant]
  4. ZELNORM [Concomitant]
     Dosage: 6 MG, UNK
  5. VERSED [Concomitant]
     Dosage: UNK
     Route: 042
     Dates: start: 20060816
  6. FORANE [Concomitant]
     Dosage: UNK
     Route: 042
     Dates: start: 20060816
  7. PROTAMINE SULFATE [Concomitant]
     Dosage: UNK
     Route: 042
     Dates: start: 20060816
  8. PRILOSEC [Concomitant]
     Dosage: 20 MG, UNK
  9. MAGNESIUM SULFATE [Concomitant]
     Dosage: UNK
     Route: 042
     Dates: start: 20060816
  10. CRESTOR [Concomitant]
     Dosage: 20 MG, UNK
  11. PRINIVIL [Concomitant]
     Dosage: 20/12.5 DAILY
  12. PROPOFOL [Concomitant]
     Dosage: UNK
     Route: 042
     Dates: start: 20060816
  13. NITROGLYCERIN [Concomitant]
     Dosage: UNK
     Route: 042
     Dates: start: 20060816
  14. TRASYLOL [Suspect]
     Dosage: 50ML/HOUR INFUSION
     Route: 042
     Dates: start: 20060816, end: 20060816
  15. HEPARIN [Concomitant]
     Dosage: UNK
     Route: 042
     Dates: start: 20060816
  16. NOVOLIN R [Concomitant]
     Dosage: 6 U, UNK
     Route: 042
     Dates: start: 20060816
  17. ASPIRIN [Concomitant]
  18. SUFENTA PRESERVATIVE FREE [Concomitant]
     Dosage: UNK
     Route: 042
     Dates: start: 20060816
  19. VANCOMYCIN [Concomitant]
     Dosage: 1 G, UNK
     Route: 042
     Dates: start: 20060816
  20. EPINEPHRINE [Concomitant]
     Dosage: UNK
     Route: 042
     Dates: start: 20060816
  21. PHENYLEPHRINE HCL [Concomitant]
     Dosage: UNK
     Route: 042
     Dates: start: 20060816

REACTIONS (11)
  - INJURY [None]
  - RENAL FAILURE [None]
  - EMOTIONAL DISTRESS [None]
  - STRESS [None]
  - ANXIETY [None]
  - MULTI-ORGAN FAILURE [None]
  - PAIN [None]
  - RENAL INJURY [None]
  - FEAR [None]
  - RENAL IMPAIRMENT [None]
  - UNEVALUABLE EVENT [None]
